FAERS Safety Report 8495562-1 (Version None)
Quarter: 2012Q3

REPORT INFORMATION
  Report Type: 
  Country: None (occurrence: None)
  Receive Date: 20120709
  Receipt Date: 20120628
  Transmission Date: 20120928
  Serious: Yes (Hospitalization)
  Sender: FDA-Public Use
  Company Number: AT-ROCHE-1077491

PATIENT
  Sex: Female

DRUGS (4)
  1. XELODA [Suspect]
     Indication: COLON CANCER
     Route: 048
  2. VIREAD [Concomitant]
     Indication: HEPATITIS B
     Route: 048
  3. ELOXATIN [Suspect]
     Indication: COLON CANCER
     Route: 042
  4. ESCITALOPRAM [Concomitant]
     Indication: ANXIETY
     Route: 048

REACTIONS (3)
  - DIARRHOEA [None]
  - LIPASE INCREASED [None]
  - PANCREATIC ENZYMES INCREASED [None]
